FAERS Safety Report 10950620 (Version 2)
Quarter: 2015Q3

REPORT INFORMATION
  Report Type: Spontaneous
  Country: US (occurrence: US)
  Receive Date: 20150324
  Receipt Date: 20150716
  Transmission Date: 20151125
  Serious: No
  Sender: FDA-Public Use
  Company Number: US-GLAXOSMITHKLINE-US2015036875

PATIENT
  Sex: Female

DRUGS (4)
  1. LETROZOLE. [Concomitant]
     Active Substance: LETROZOLE
  2. HERCEPTIN [Concomitant]
     Active Substance: TRASTUZUMAB
  3. TYKERB [Suspect]
     Active Substance: LAPATINIB DITOSYLATE
     Dosage: 1250 UNK, UNK
     Dates: start: 20150306
  4. TYKERB [Suspect]
     Active Substance: LAPATINIB DITOSYLATE
     Indication: BREAST CANCER
     Dosage: 1500 MG, 1D
     Route: 048

REACTIONS (3)
  - Rash [Not Recovered/Not Resolved]
  - Diarrhoea [Not Recovered/Not Resolved]
  - Therapy cessation [Recovered/Resolved]
